FAERS Safety Report 17942560 (Version 1)
Quarter: 2020Q2

REPORT INFORMATION
  Report Type: Report from Study
  Country: None (occurrence: CH)
  Receive Date: 20200624
  Receipt Date: 20200624
  Transmission Date: 20200714
  Serious: Yes (Other)
  Sender: FDA-Public Use
  Company Number: CH-ABBVIE-20K-151-3456584-00

PATIENT
  Age: 86 Year
  Sex: Female

DRUGS (4)
  1. DUODOPA [Suspect]
     Active Substance: CARBIDOPA\LEVODOPA
     Dosage: M.D: 7 ML, C.R DAY: 2.4 ML/H, C.R NIGHT: 0 ML/H, E.D: 2 ML, 16 H THERAPY
     Route: 050
     Dates: start: 20200622
  2. DUODOPA [Suspect]
     Active Substance: CARBIDOPA\LEVODOPA
     Indication: PARKINSON^S DISEASE
     Route: 050
     Dates: start: 20150803, end: 20190227
  3. DUODOPA [Suspect]
     Active Substance: CARBIDOPA\LEVODOPA
     Dosage: M.D: 7 ML, C.R DAY: 2.4 ML/H, C.R NIGHT: 0 ML/H, E.D- 2 ML, 16 H THERAPY
     Route: 050
     Dates: start: 20200610, end: 20200622
  4. DUODOPA [Suspect]
     Active Substance: CARBIDOPA\LEVODOPA
     Dosage: M.D : 7 ML, C.R DAY: 2.2 ML/H, C.R NIGHT: 0 ML/H, E.D: 2 ML, 16 H THERAPY
     Route: 050
     Dates: start: 20190227, end: 20200610

REACTIONS (3)
  - Skin cancer [Unknown]
  - Device issue [Recovered/Resolved]
  - Embedded device [Unknown]

NARRATIVE: CASE EVENT DATE: 20200622
